FAERS Safety Report 21946834 (Version 3)
Quarter: 2023Q1

REPORT INFORMATION
  Report Type: Report from Study
  Country: US (occurrence: US)
  Receive Date: 20230202
  Receipt Date: 20230314
  Transmission Date: 20230418
  Serious: Yes (Life-Threatening, Hospitalization, Disabling, Other)
  Sender: FDA-Public Use
  Company Number: US-002147023-NVSC2023US022740

PATIENT
  Sex: Female

DRUGS (6)
  1. ENTRESTO [Suspect]
     Active Substance: SACUBITRIL\VALSARTAN
     Indication: Cardiac failure
     Dosage: 1 DOSAGE FORM, BID
     Route: 048
     Dates: start: 202205
  2. METOPROLOL [Suspect]
     Active Substance: METOPROLOL
     Indication: Atrial fibrillation
     Dosage: 25 MG, QD
     Route: 048
     Dates: start: 2021
  3. METOPROLOL [Suspect]
     Active Substance: METOPROLOL
     Indication: Cardiac failure
  4. AMIODARONE [Suspect]
     Active Substance: AMIODARONE
     Indication: Product used for unknown indication
     Dosage: UNK UNK, UNKNOWN
     Route: 048
     Dates: start: 202205
  5. DEPO-PROVERA [Suspect]
     Active Substance: MEDROXYPROGESTERONE ACETATE
     Indication: Contraception
     Dosage: UNK UNK, Q3MO (EVERY 3 MONTHS)
     Route: 065
  6. DEPO-PROVERA [Suspect]
     Active Substance: MEDROXYPROGESTERONE ACETATE
     Dosage: UNK UNK, Q3MO (EVERY 3 MONTHS)
     Route: 065

REACTIONS (14)
  - Cardiac arrest [Recovered/Resolved]
  - Hypervolaemia [Recovered/Resolved]
  - Atrial fibrillation [Unknown]
  - Palpitations [Recovered/Resolved]
  - Coma [Recovered/Resolved]
  - Cerebrovascular accident [Recovering/Resolving]
  - Dyspnoea [Recovered/Resolved]
  - Cardiac flutter [Recovering/Resolving]
  - Palpitations [Recovering/Resolving]
  - Panic attack [Recovering/Resolving]
  - Memory impairment [Unknown]
  - Peroneal nerve palsy [Recovering/Resolving]
  - Muscular weakness [Recovering/Resolving]
  - Weight increased [Unknown]

NARRATIVE: CASE EVENT DATE: 20210101
